FAERS Safety Report 15509056 (Version 1)
Quarter: 2018Q4

REPORT INFORMATION
  Report Type: Spontaneous
  Country: US (occurrence: US)
  Receive Date: 20181016
  Receipt Date: 20181016
  Transmission Date: 20190205
  Serious: Yes (Hospitalization)
  Sender: FDA-Public Use
  Company Number: None

PATIENT
  Sex: Male

DRUGS (13)
  1. HUMALOG [Concomitant]
     Active Substance: INSULIN LISPRO
  2. OXYCODONE [Concomitant]
     Active Substance: OXYCODONE
  3. LANTUS [Concomitant]
     Active Substance: INSULIN GLARGINE
  4. LIPITOR [Concomitant]
     Active Substance: ATORVASTATIN CALCIUM
  5. VITAMIN C [Concomitant]
     Active Substance: ASCORBIC ACID
  6. ANTIBIOTIC CRE PLUS [Concomitant]
  7. SMZ-TMP [Concomitant]
     Active Substance: SULFAMETHOXAZOLE\TRIMETHOPRIM
  8. AMLODIPINE [Concomitant]
     Active Substance: AMLODIPINE BESYLATE
  9. IRON [Concomitant]
     Active Substance: IRON
  10. ZYTIGA [Suspect]
     Active Substance: ABIRATERONE ACETATE
     Indication: PROSTATE CANCER
     Route: 048
     Dates: start: 20180213
  11. ASPIRIN. [Concomitant]
     Active Substance: ASPIRIN
  12. CANDESARTAN. [Concomitant]
     Active Substance: CANDESARTAN
  13. FENTANYL. [Concomitant]
     Active Substance: FENTANYL

REACTIONS (3)
  - Back pain [None]
  - Product dose omission [None]
  - Musculoskeletal chest pain [None]
